FAERS Safety Report 13904596 (Version 1)
Quarter: 2017Q3

REPORT INFORMATION
  Report Type: Spontaneous
  Country: US (occurrence: US)
  Receive Date: 20170825
  Receipt Date: 20170825
  Transmission Date: 20171127
  Serious: No
  Sender: FDA-Public Use
  Company Number: US-PFIZER INC-2017362886

PATIENT
  Age: 64 Year
  Sex: Female

DRUGS (1)
  1. AMLODIPINE BESILATE [Suspect]
     Active Substance: AMLODIPINE BESYLATE
     Dosage: 5 MG, UNK

REACTIONS (14)
  - Vision blurred [Unknown]
  - Back pain [Unknown]
  - Breast pain [Unknown]
  - Fatigue [Unknown]
  - Arthralgia [Unknown]
  - Blood pressure increased [Unknown]
  - Dyspnoea [Unknown]
  - Joint stiffness [Unknown]
  - Depression [Unknown]
  - Insomnia [Unknown]
  - Anxiety [Unknown]
  - General physical condition abnormal [Unknown]
  - Pain in extremity [Unknown]
  - Rash [Unknown]
